FAERS Safety Report 5369409-6 (Version None)
Quarter: 2007Q2

REPORT INFORMATION
  Report Type: 
  Country: None (occurrence: None)
  Receive Date: 20070625
  Receipt Date: 20070418
  Transmission Date: 20071010
  Serious: No
  Sender: FDA-Public Use
  Company Number: US-ASTRAZENECA-2007UW07696

PATIENT
  Age: 41 Year
  Sex: Male
  Weight: 107 kg

DRUGS (5)
  1. CRESTOR [Suspect]
     Indication: BLOOD CHOLESTEROL INCREASED
     Route: 048
     Dates: start: 20070401
  2. GLIPIZIDE [Concomitant]
  3. MULTIPLE VITAMIN [Concomitant]
  4. OXYCODONE HCL [Concomitant]
  5. ALPRAZOLAM [Concomitant]

REACTIONS (1)
  - FEELING DRUNK [None]
